FAERS Safety Report 7577734-3 (Version None)
Quarter: 2011Q2

REPORT INFORMATION
  Report Type: 
  Country: None (occurrence: None)
  Receive Date: 20110628
  Receipt Date: 20110623
  Transmission Date: 20111010
  Serious: Yes (Death, Hospitalization, Congenital Anomaly, Other)
  Sender: FDA-Public Use
  Company Number: US-PFIZER INC-2011139942

PATIENT
  Sex: Female

DRUGS (2)
  1. LEXAPRO [Suspect]
     Indication: DEPRESSION
     Dosage: UNK
     Route: 064
     Dates: start: 20030101, end: 20030101
  2. ZOLOFT [Suspect]
     Indication: DEPRESSION
     Dosage: UNK
     Route: 064
     Dates: start: 20030201, end: 20030501

REACTIONS (4)
  - LEFT VENTRICULAR FAILURE [None]
  - DRUG EXPOSURE DURING PREGNANCY [None]
  - LEFT VENTRICULAR DYSFUNCTION [None]
  - AORTIC STENOSIS [None]
